FAERS Safety Report 9130229 (Version 1)
Quarter: 2013Q1

REPORT INFORMATION
  Report Type: Spontaneous
  Country: AU (occurrence: AU)
  Receive Date: 20130228
  Receipt Date: 20130228
  Transmission Date: 20140127
  Serious: Yes (Other)
  Sender: FDA-Public Use
  Company Number: AU-ROCHE-1192529

PATIENT
  Age: 31 Year
  Sex: Male

DRUGS (5)
  1. RITUXIMAB [Suspect]
     Indication: PRODUCT USED FOR UNKNOWN INDICATION
     Route: 065
  2. CYCLOPHOSPHAMIDE [Concomitant]
  3. HYDROXYDAUNORUBICIN [Concomitant]
  4. VINCRISTINE [Concomitant]
  5. PREDNISOLONE [Concomitant]

REACTIONS (9)
  - Lymphadenopathy [Unknown]
  - Lymphoma [Unknown]
  - Lymphadenopathy [Unknown]
  - Lymphoma [Unknown]
  - Spleen scan abnormal [Unknown]
  - Lymphadenopathy [Unknown]
  - Neoplasm progression [Unknown]
  - Hypersplenism [Unknown]
  - Lung infiltration [Unknown]
